FAERS Safety Report 4309683-8 (Version None)
Quarter: 2004Q1

REPORT INFORMATION
  Report Type: 
  Country: None (occurrence: None)
  Receive Date: 20040302
  Receipt Date: 20040218
  Transmission Date: 20041129
  Serious: Yes (Death, Hospitalization, Other)
  Sender: FDA-Public Use
  Company Number: 2004011122

PATIENT
  Age: 81 Year
  Sex: Female
  Weight: 83.9154 kg

DRUGS (13)
  1. TIKOSYN [Suspect]
     Indication: CARDIAC DISORDER
     Dosage: 250 MCG (BID), ORAL
     Route: 048
     Dates: start: 20021101
  2. METFORMIN HCL [Concomitant]
  3. ROSIGLITAZONE MALEATE [Concomitant]
  4. TELMISARTAN (TELMISARTAN) [Concomitant]
  5. LANSOPRAZOLE [Concomitant]
  6. FLUOXETINE HCL [Concomitant]
  7. BUSPIRONE HCL [Concomitant]
  8. WARFARIN SODIUM [Concomitant]
  9. PREDNISONE [Concomitant]
  10. METOPROLOL TARTRATE [Concomitant]
  11. ALENDRONATE SODIUM [Concomitant]
  12. CONJUGATED ESTROGENS [Concomitant]
  13. INSULIN [Concomitant]

REACTIONS (7)
  - EATING DISORDER [None]
  - HIP FRACTURE [None]
  - IMPAIRED HEALING [None]
  - INCONTINENCE [None]
  - OEDEMA [None]
  - OLIGODIPSIA [None]
  - RENAL FAILURE [None]
